FAERS Safety Report 24665023 (Version 1)
Quarter: 2024Q4

REPORT INFORMATION
  Report Type: Spontaneous
  Country: ES (occurrence: ES)
  Receive Date: 20241126
  Receipt Date: 20241126
  Transmission Date: 20250115
  Serious: Yes (Hospitalization, Other)
  Sender: PFIZER
  Company Number: None

PATIENT
  Age: 50 Year
  Sex: Male
  Weight: 100 kg

DRUGS (6)
  1. BEVACIZUMAB [Suspect]
     Active Substance: BEVACIZUMAB
     Indication: Glioblastoma
     Dosage: 1030 MG, CYCLIC (EVERY 2 WEEKS 10MG/KG IN ASSOCIATION WITH IRINOTECAN)
     Route: 042
     Dates: start: 20241021, end: 20241021
  2. IRINOTECAN [Concomitant]
     Active Substance: IRINOTECAN
     Dosage: 286 MG, CYCLIC (EVERY 2 WEEKS)
     Route: 042
     Dates: start: 20241021
  3. AMILORIDE HYDROCHLORIDE\HYDROCHLOROTHIAZIDE [Concomitant]
     Active Substance: AMILORIDE HYDROCHLORIDE\HYDROCHLOROTHIAZIDE
     Dosage: 1 DF, 1X/DAY (EVERY 24H)
     Route: 048
     Dates: start: 20210322
  4. MANIDIPINO CINFA [Concomitant]
     Dosage: 10 MG, 1X/DAY (EVERY 24H)
     Route: 048
     Dates: start: 20160802
  5. RAMIPRIL CINFA [Concomitant]
     Dosage: 5 MG, 1X/DAY (EVERY 24H)
     Route: 048
     Dates: start: 20210809
  6. VALPROIC ACID [Concomitant]
     Active Substance: VALPROIC ACID
     Dosage: 1000 MG, 2X/DAY (EVERY 12 H)
     Route: 048
     Dates: start: 20120919

REACTIONS (2)
  - Ischaemic stroke [Recovering/Resolving]
  - Off label use [Unknown]

NARRATIVE: CASE EVENT DATE: 20241021
